FAERS Safety Report 5924883-9 (Version None)
Quarter: 2008Q4

REPORT INFORMATION
  Report Type: 
  Country: None (occurrence: None)
  Receive Date: 20081021
  Receipt Date: 20081016
  Transmission Date: 20090506
  Serious: Yes (Hospitalization, Other)
  Sender: FDA-Public Use
  Company Number: FR-JNJFOC-20081003364

PATIENT
  Age: 50 Year
  Sex: Female

DRUGS (2)
  1. RISPERDAL [Suspect]
     Indication: DRUG USE FOR UNKNOWN INDICATION
     Route: 048
  2. ANTICOAGULANT DRUG [Concomitant]
     Indication: CARDIAC DISORDER

REACTIONS (2)
  - CARDIAC DISORDER [None]
  - DIABETES MELLITUS [None]
